FAERS Safety Report 6657832-9 (Version None)
Quarter: 2010Q1

REPORT INFORMATION
  Report Type: 
  Country: None (occurrence: None)
  Receive Date: 20100330
  Receipt Date: 20100322
  Transmission Date: 20100710
  Serious: Yes (Other)
  Sender: FDA-Public Use
  Company Number: AU-WYE-H13961910

PATIENT
  Age: 78 Year
  Sex: Female
  Weight: 75 kg

DRUGS (5)
  1. SOMAC [Suspect]
     Dosage: 20 MG, FREQUENCY UNSPECIFIED
     Route: 048
     Dates: start: 20091222, end: 20100113
  2. METOPROLOL [Concomitant]
     Dosage: UNKNOWN
     Dates: start: 20091222
  3. PLAVIX [Concomitant]
     Dosage: UNKNOWN
     Dates: start: 20091222
  4. CARTIA XT [Concomitant]
     Dosage: 100 MG
     Dates: start: 20070101
  5. LIPITOR [Concomitant]
     Dosage: 20 MG
     Dates: start: 20091222

REACTIONS (5)
  - BACK PAIN [None]
  - EOSINOPHILIA [None]
  - HYPERSENSITIVITY [None]
  - RASH MACULO-PAPULAR [None]
  - RENAL IMPAIRMENT [None]
